FAERS Safety Report 5974849-8 (Version None)
Quarter: 2008Q4

REPORT INFORMATION
  Report Type: 
  Country: None (occurrence: None)
  Receive Date: 20081202
  Receipt Date: 20081127
  Transmission Date: 20090506
  Serious: Yes (Other)
  Sender: FDA-Public Use
  Company Number: DE-PFIZER INC-2008087911

PATIENT
  Sex: Male

DRUGS (1)
  1. UNACID ORAL [Suspect]
     Indication: CELLULITIS
     Route: 048
     Dates: start: 20080201

REACTIONS (2)
  - DEPRESSION [None]
  - SLEEP DISORDER [None]
